FAERS Safety Report 7941253-2 (Version None)
Quarter: 2011Q4

REPORT INFORMATION
  Report Type: 
  Country: None (occurrence: None)
  Receive Date: 20111122
  Receipt Date: 20111122
  Transmission Date: 20120403
  Serious: No
  Sender: FDA-Public Use
  Company Number: None

PATIENT

DRUGS (1)
  1. SPINAL BUPIVACAINE 0.75% IN DEXTRO 8.75% HOSPIRA [Suspect]
     Dates: start: 20111117

REACTIONS (1)
  - DRUG INEFFECTIVE [None]
